FAERS Safety Report 14592956 (Version 1)
Quarter: 2018Q1

REPORT INFORMATION
  Report Type: Other
  Country: NO (occurrence: NO)
  Receive Date: 20180302
  Receipt Date: 20180302
  Transmission Date: 20180509
  Serious: Yes (Other)
  Sender: FDA-Public Use
  Company Number: NO-MACLEODS PHARMACEUTICALS US LTD-MAC2018010717

PATIENT

DRUGS (5)
  1. QUETIAPINE. [Suspect]
     Active Substance: QUETIAPINE
     Dosage: 200 MG, QD
     Route: 065
  2. ARIPIPRAZOLE. [Suspect]
     Active Substance: ARIPIPRAZOLE
     Indication: MENTAL DISORDER
     Dosage: UNK
     Route: 065
  3. QUETIAPINE. [Suspect]
     Active Substance: QUETIAPINE
     Dosage: 1600 MG, QD
  4. QUETIAPINE. [Suspect]
     Active Substance: QUETIAPINE
     Indication: MENTAL DISORDER
     Dosage: 1 DF, QD (1 DF= 200-1600 MG PER DAY )
     Route: 065
  5. ASENAPINE [Suspect]
     Active Substance: ASENAPINE
     Indication: MENTAL DISORDER
     Dosage: 10 MG, QD
     Route: 065

REACTIONS (2)
  - Oculogyric crisis [Unknown]
  - Product use in unapproved indication [Unknown]
